FAERS Safety Report 5375448-1 (Version None)
Quarter: 2007Q2

REPORT INFORMATION
  Report Type: 
  Country: None (occurrence: None)
  Receive Date: 20070629
  Receipt Date: 20070622
  Transmission Date: 20071010
  Serious: Yes (Other)
  Sender: FDA-Public Use
  Company Number: US-BOEHRINGER INGELHEIM PHARMACEUTICALS, INC.-2007-BP-12561BP

PATIENT
  Sex: Female

DRUGS (11)
  1. SPIRIVA [Suspect]
     Indication: ASTHMA
     Route: 055
     Dates: start: 20070421
  2. PULMICORT [Concomitant]
     Indication: ASTHMA
  3. FLUTICASONE NASAL SPRAY [Concomitant]
     Indication: SEASONAL ALLERGY
  4. ALLEGRA [Concomitant]
     Indication: SEASONAL ALLERGY
  5. GLYBURIDE [Concomitant]
     Indication: DIABETES MELLITUS
  6. METFORMIN HCL [Concomitant]
     Indication: DIABETES MELLITUS
  7. TOPROL-XL [Concomitant]
     Indication: HYPERTENSION
  8. HYDROCHLOROTHIAZIDE [Concomitant]
     Indication: HYPERTENSION
  9. MAGNESIUM SULFATE [Concomitant]
  10. ALBUTEROL [Concomitant]
     Indication: ASTHMA
  11. FISH OIL [Concomitant]
     Indication: BLOOD CHOLESTEROL INCREASED

REACTIONS (2)
  - SMALL CELL LUNG CANCER STAGE UNSPECIFIED [None]
  - URINARY RETENTION [None]
